FAERS Safety Report 13822566 (Version 1)
Quarter: 2017Q3

REPORT INFORMATION
  Report Type: Spontaneous
  Country: US (occurrence: US)
  Receive Date: 20170801
  Receipt Date: 20170801
  Transmission Date: 20171127
  Serious: Yes (Other)
  Sender: FDA-Public Use
  Company Number: US-ELI_LILLY_AND_COMPANY-US201707008576

PATIENT
  Sex: Male

DRUGS (1)
  1. ADCIRCA [Suspect]
     Active Substance: TADALAFIL
     Indication: PULMONARY ARTERIAL HYPERTENSION
     Dosage: 20 MG, DAILY
     Route: 048

REACTIONS (11)
  - Pneumonia [Unknown]
  - Peripheral swelling [Unknown]
  - Dyspnoea [Unknown]
  - Macular degeneration [Unknown]
  - Somnolence [Unknown]
  - Cataract [Unknown]
  - Nervousness [Unknown]
  - Pigmentation disorder [Unknown]
  - Off label use [Unknown]
  - Blood pressure decreased [Unknown]
  - Palpitations [Unknown]
